FAERS Safety Report 8214098-6 (Version None)
Quarter: 2012Q1

REPORT INFORMATION
  Report Type: 
  Country: None (occurrence: None)
  Receive Date: 20120316
  Receipt Date: 20120309
  Transmission Date: 20120608
  Serious: No
  Sender: FDA-Public Use
  Company Number: US-PFIZER INC-2012064626

PATIENT

DRUGS (2)
  1. ISOSORBIDE DINITRATE [Suspect]
     Dosage: UNK
  2. PROCARDIA [Suspect]
     Dosage: UNK

REACTIONS (2)
  - HYPERSENSITIVITY [None]
  - MIGRAINE [None]
